FAERS Safety Report 5849531-8 (Version None)
Quarter: 2008Q3

REPORT INFORMATION
  Report Type: 
  Country: None (occurrence: None)
  Receive Date: 20080819
  Receipt Date: 20080808
  Transmission Date: 20090109
  Serious: Yes (Hospitalization)
  Sender: FDA-Public Use
  Company Number: B0532505A

PATIENT
  Age: 31 Year
  Sex: Female

DRUGS (4)
  1. AUGMENTIN '125' [Suspect]
     Indication: ANTIBIOTIC PROPHYLAXIS
     Route: 042
     Dates: start: 20080509, end: 20080509
  2. DIPRIVAN [Concomitant]
     Indication: GENERAL ANAESTHESIA
     Route: 042
     Dates: start: 20080509, end: 20080509
  3. ALFENTANIL [Concomitant]
     Indication: GENERAL ANAESTHESIA
     Route: 042
     Dates: start: 20080509, end: 20080509
  4. PERFALGAN [Concomitant]
     Indication: PERIOPERATIVE ANALGESIA
     Route: 042
     Dates: start: 20080509, end: 20080509

REACTIONS (5)
  - ANAPHYLACTIC SHOCK [None]
  - BRONCHOSPASM [None]
  - DRUG HYPERSENSITIVITY [None]
  - HYPOTENSION [None]
  - RASH [None]
